FAERS Safety Report 6807286-4 (Version None)
Quarter: 2010Q2

REPORT INFORMATION
  Report Type: 
  Country: None (occurrence: None)
  Receive Date: 20100628
  Receipt Date: 20100628
  Transmission Date: 20101027
  Serious: Yes (Hospitalization)
  Sender: FDA-Public Use
  Company Number: None

PATIENT
  Sex: Female

DRUGS (1)
  1. IOPAMIDOL-370 [Suspect]
     Indication: COMPUTERISED TOMOGRAM
     Dosage: 100 CC ONCE IV
     Route: 042

REACTIONS (5)
  - CHEST PAIN [None]
  - DYSPNOEA [None]
  - FEELING ABNORMAL [None]
  - HEART RATE INCREASED [None]
  - URTICARIA [None]
